FAERS Safety Report 4908102-8 (Version None)
Quarter: 2006Q1

REPORT INFORMATION
  Report Type: 
  Country: None (occurrence: None)
  Receive Date: 20060210
  Receipt Date: 20060202
  Transmission Date: 20060701
  Serious: Yes (Other)
  Sender: FDA-Public Use
  Company Number: 2006SE00676

PATIENT
  Age: 22563 Day
  Sex: Female

DRUGS (2)
  1. MERREM [Suspect]
     Indication: POSTOPERATIVE INFECTION
     Route: 042
     Dates: start: 20060117, end: 20060128
  2. BEMIPARIN SODIUM [Concomitant]
     Route: 058
     Dates: start: 20060119, end: 20060128

REACTIONS (2)
  - AGRANULOCYTOSIS [None]
  - PANCYTOPENIA [None]
